FAERS Safety Report 21937079 (Version 1)
Quarter: 2023Q1

REPORT INFORMATION
  Report Type: Spontaneous
  Country: US (occurrence: None)
  Receive Date: 20230131
  Receipt Date: 20230131
  Transmission Date: 20230417
  Serious: Yes (Hospitalization)
  Sender: FDA-Public Use
  Company Number: None

PATIENT
  Age: 59 Year
  Sex: Male
  Weight: 93.39 kg

DRUGS (14)
  1. MEKINIST [Suspect]
     Active Substance: TRAMETINIB DIMETHYL SULFOXIDE
     Indication: Colon cancer stage 0
     Dosage: FREQUENCY : DAILY;?
     Route: 048
  2. ALLERGY RELIEF [Concomitant]
  3. ATENOLOL [Concomitant]
     Active Substance: ATENOLOL
  4. CATHFLO ACTIVASE [Concomitant]
     Active Substance: ALTEPLASE
  5. DIPHENHYDRAMINE [Concomitant]
     Active Substance: DIPHENHYDRAMINE
  6. ELIQUIS [Concomitant]
     Active Substance: APIXABAN
  7. HEPARIN [Concomitant]
     Active Substance: HEPARIN SODIUM
  8. K-TAB [Concomitant]
     Active Substance: POTASSIUM CHLORIDE
  9. LISINOPRIL AND HYDROCHLOROTHIAZIDE [Concomitant]
     Active Substance: HYDROCHLOROTHIAZIDE\LISINOPRIL
  10. ONDANSETRON [Concomitant]
     Active Substance: ONDANSETRON
  11. PHENOBARBITAL [Concomitant]
     Active Substance: PHENOBARBITAL
  12. PROMETHAZINE [Concomitant]
     Active Substance: PROMETHAZINE HYDROCHLORIDE
  13. VIMPAT [Concomitant]
     Active Substance: LACOSAMIDE
  14. VITAMIN C [Concomitant]
     Active Substance: ASCORBIC ACID

REACTIONS (1)
  - Hospitalisation [None]
